FAERS Safety Report 18359876 (Version 1)
Quarter: 2020Q4

REPORT INFORMATION
  Report Type: Spontaneous
  Country: US (occurrence: US)
  Receive Date: 20201008
  Receipt Date: 20201008
  Transmission Date: 20210114
  Serious: No
  Sender: FDA-Public Use
  Company Number: None

PATIENT
  Sex: Female

DRUGS (11)
  1. LEVOTHYROXIN [Concomitant]
     Active Substance: LEVOTHYROXINE
  2. FOLIC ACID. [Concomitant]
     Active Substance: FOLIC ACID
  3. OMPERAZOLE [Concomitant]
     Active Substance: OMEPRAZOLE
  4. VESICARE [Concomitant]
     Active Substance: SOLIFENACIN SUCCINATE
  5. KEYTRUDA [Suspect]
     Active Substance: PEMBROLIZUMAB
  6. INLYTA [Suspect]
     Active Substance: AXITINIB
     Route: 048
     Dates: start: 20200326
  7. LISINOPRIL. [Concomitant]
     Active Substance: LISINOPRIL
  8. ONDANSETRON [Concomitant]
     Active Substance: ONDANSETRON
  9. VALSARTAN. [Concomitant]
     Active Substance: VALSARTAN
  10. MAGNESIUM [Concomitant]
     Active Substance: MAGNESIUM
  11. KEYTRUDA [Suspect]
     Active Substance: PEMBROLIZUMAB

REACTIONS (3)
  - Diarrhoea [None]
  - Drug ineffective [None]
  - Neoplasm progression [None]
